FAERS Safety Report 5802181-1 (Version None)
Quarter: 2008Q3

REPORT INFORMATION
  Report Type: 
  Country: None (occurrence: None)
  Receive Date: 20080707
  Receipt Date: 20080625
  Transmission Date: 20090109
  Serious: Yes (Other)
  Sender: FDA-Public Use
  Company Number: US-PFIZER INC-2008053085

PATIENT
  Age: 68 Year
  Sex: Male
  Weight: 104.54 kg

DRUGS (5)
  1. CHANTIX [Suspect]
  2. TRICOR [Concomitant]
  3. ZOCOR [Concomitant]
  4. NORVASC [Concomitant]
  5. ALL OTHER THERAPEUTIC PRODUCTS [Concomitant]

REACTIONS (7)
  - ABDOMINAL DISTENSION [None]
  - ERYTHEMA [None]
  - HYPERSOMNIA [None]
  - LETHARGY [None]
  - OEDEMA PERIPHERAL [None]
  - RASH GENERALISED [None]
  - SWELLING [None]
